FAERS Safety Report 14307112 (Version 1)
Quarter: 2017Q4

REPORT INFORMATION
  Report Type: Report from Study
  Country: None (occurrence: US)
  Receive Date: 20171220
  Receipt Date: 20171220
  Transmission Date: 20180321
  Serious: Yes (Other)
  Sender: FDA-Public Use
  Company Number: US-ABBVIE-17K-163-2198148-00

PATIENT
  Age: 63 Year
  Sex: Male

DRUGS (1)
  1. HUMIRA [Suspect]
     Active Substance: ADALIMUMAB
     Indication: PSORIASIS
     Route: 058

REACTIONS (6)
  - Herpes zoster [Recovered/Resolved with Sequelae]
  - Fall [Unknown]
  - Rib fracture [Recovered/Resolved with Sequelae]
  - Intestinal obstruction [Recovered/Resolved with Sequelae]
  - Clavicle fracture [Recovered/Resolved with Sequelae]
  - Back injury [Not Recovered/Not Resolved]

NARRATIVE: CASE EVENT DATE: 201502
